FAERS Safety Report 5779993-6 (Version None)
Quarter: 2008Q2

REPORT INFORMATION
  Report Type: 
  Country: None (occurrence: None)
  Receive Date: 20080620
  Receipt Date: 20080610
  Transmission Date: 20081010
  Serious: Yes (Hospitalization)
  Sender: FDA-Public Use
  Company Number: FR-JNJFOC-20080604217

PATIENT
  Sex: Male

DRUGS (6)
  1. IXPRIM [Suspect]
     Indication: ARTHRALGIA
     Route: 048
  2. DAFALGAN [Suspect]
     Indication: ARTHRALGIA
     Route: 048
  3. PREDNISONE TAB [Concomitant]
  4. POTASSIUM CHLORIDE [Concomitant]
  5. OROCAL D [Concomitant]
  6. ACTONEL [Concomitant]

REACTIONS (3)
  - BLOOD ALKALINE PHOSPHATASE INCREASED [None]
  - DYSPNOEA [None]
  - TRANSAMINASES INCREASED [None]
